FAERS Safety Report 7982378-5 (Version None)
Quarter: 2011Q4

REPORT INFORMATION
  Report Type: 
  Country: None (occurrence: None)
  Receive Date: 20111215
  Receipt Date: 20111206
  Transmission Date: 20120403
  Serious: Yes (Other)
  Sender: FDA-Public Use
  Company Number: PHHY2011US92638

PATIENT
  Age: 64 Year
  Sex: Male

DRUGS (7)
  1. THALIDOMIDE [Concomitant]
  2. CLARITHROMYCIN [Concomitant]
     Route: 048
  3. BORTEZOMIB [Concomitant]
     Route: 042
  4. PAMIDRONATE DISODIUM [Suspect]
     Dosage: 90 MG, QMO
     Route: 042
     Dates: end: 20020101
  5. MELPHALAN HYDROCHLORIDE [Concomitant]
     Dates: start: 20080101
  6. ZOLEDRONIC ACID [Suspect]
     Indication: MULTIPLE MYELOMA
     Dosage: 4 MG  QMO-(MONTHLY DOSE OF 4 MG)
     Route: 042
     Dates: start: 20020101
  7. METHYLPREDNISOLONE [Concomitant]

REACTIONS (8)
  - PAIN IN EXTREMITY [None]
  - FOOT FRACTURE [None]
  - DISCOMFORT [None]
  - NEOPLASM MALIGNANT [None]
  - NEOPLASM PROGRESSION [None]
  - PAIN [None]
  - OEDEMA PERIPHERAL [None]
  - RIB FRACTURE [None]
